FAERS Safety Report 16080055 (Version 2)
Quarter: 2019Q1

REPORT INFORMATION
  Report Type: Spontaneous
  Country: US (occurrence: US)
  Receive Date: 20190315
  Receipt Date: 20190329
  Transmission Date: 20190418
  Serious: No
  Sender: FDA-Public Use
  Company Number: PHEH2019US010594

PATIENT
  Sex: Female

DRUGS (1)
  1. CLOBETASOL PROPIONATE. [Suspect]
     Active Substance: CLOBETASOL PROPIONATE
     Indication: VAGINAL DISORDER
     Dosage: UNK
     Route: 065

REACTIONS (3)
  - Product formulation issue [Unknown]
  - Drug ineffective [Unknown]
  - Product packaging issue [Unknown]
